FAERS Safety Report 9159902 (Version 1)
Quarter: 2013Q1

REPORT INFORMATION
  Report Type: Spontaneous
  Country: JP (occurrence: JP)
  Receive Date: 20130313
  Receipt Date: 20130313
  Transmission Date: 20140127
  Serious: Yes (Other)
  Sender: FDA-Public Use
  Company Number: PHHY2013JP023786

PATIENT
  Sex: 0

DRUGS (1)
  1. CICLOSPORIN [Suspect]
     Indication: PSORIASIS

REACTIONS (2)
  - VIIth nerve paralysis [Unknown]
  - Hypertension [Unknown]
